FAERS Safety Report 8571947-X (Version None)
Quarter: 2012Q2

REPORT INFORMATION
  Report Type: 
  Country: None (occurrence: None)
  Receive Date: 20120423
  Receipt Date: 20100929
  Transmission Date: 20120825
  Serious: Yes (Hospitalization)
  Sender: FDA-Public Use
  Company Number: PHHY2010US55534

PATIENT
  Age: 66 Year
  Sex: Female
  Weight: 124.3 kg

DRUGS (2)
  1. ATENOLOL [Concomitant]
  2. EXJADE [Suspect]
     Indication: MYELODYSPLASTIC SYNDROME
     Dosage: 2500 MG DAILY, ORAL
     Route: 048
     Dates: start: 20100722

REACTIONS (2)
  - DIARRHOEA [None]
  - NEOPLASM MALIGNANT [None]
